FAERS Safety Report 9154683 (Version 1)
Quarter: 2013Q1

REPORT INFORMATION
  Report Type: Spontaneous
  Country: US (occurrence: US)
  Receive Date: 20130311
  Receipt Date: 20130311
  Transmission Date: 20140127
  Serious: No
  Sender: FDA-Public Use
  Company Number: US-ABBOTT-12P-163-0952085-00

PATIENT
  Sex: Female

DRUGS (1)
  1. LUPRON DEPOT 11.25 MG [Suspect]
     Indication: UTERINE LEIOMYOMA
     Dates: start: 201204

REACTIONS (2)
  - Metrorrhagia [Not Recovered/Not Resolved]
  - Pelvic pain [Not Recovered/Not Resolved]
